FAERS Safety Report 20744046 (Version 1)
Quarter: 2022Q2

REPORT INFORMATION
  Report Type: Spontaneous
  Country: US (occurrence: None)
  Receive Date: 20220422
  Receipt Date: 20220422
  Transmission Date: 20220721
  Serious: No
  Sender: FDA-Public Use
  Company Number: None

PATIENT
  Age: 2 Week
  Sex: Female
  Weight: 3.5 kg

DRUGS (1)
  1. REMDESIVIR [Suspect]
     Active Substance: REMDESIVIR
     Indication: COVID-19
     Dates: start: 20220418, end: 20220419

REACTIONS (3)
  - Ocular hyperaemia [None]
  - Eye swelling [None]
  - Infusion related reaction [None]

NARRATIVE: CASE EVENT DATE: 20220419
